FAERS Safety Report 18973134 (Version 1)
Quarter: 2021Q1

REPORT INFORMATION
  Report Type: Report from Study
  Country: TW (occurrence: TW)
  Receive Date: 20210305
  Receipt Date: 20210305
  Transmission Date: 20210420
  Serious: Yes (Death)
  Sender: FDA-Public Use
  Company Number: NVSC2021TW050855

PATIENT
  Sex: Male

DRUGS (1)
  1. INC280 [Suspect]
     Active Substance: CAPMATINIB
     Indication: NON-SMALL CELL LUNG CANCER
     Dosage: UNK
     Route: 065
     Dates: start: 20200925

REACTIONS (1)
  - Death [Fatal]

NARRATIVE: CASE EVENT DATE: 202012
